FAERS Safety Report 5468397-1 (Version None)
Quarter: 2007Q3

REPORT INFORMATION
  Report Type: 
  Country: None (occurrence: None)
  Receive Date: 20070926
  Receipt Date: 20070914
  Transmission Date: 20080115
  Serious: Yes (Other)
  Sender: FDA-Public Use
  Company Number: GB-ROCHE-518329

PATIENT
  Age: 58 Year
  Sex: Female

DRUGS (3)
  1. IBANDRONATE SODIUM [Suspect]
     Indication: OSTEOPENIA
     Route: 048
     Dates: start: 20061102, end: 20070401
  2. ADCAL D3 [Concomitant]
     Route: 048
     Dates: start: 20060831
  3. ESTRADERM [Concomitant]

REACTIONS (1)
  - BREAST TENDERNESS [None]
